FAERS Safety Report 12828599 (Version 2)
Quarter: 2017Q1

REPORT INFORMATION
  Report Type: Spontaneous
  Country: IL (occurrence: IL)
  Receive Date: 20161007
  Receipt Date: 20170302
  Transmission Date: 20170428
  Serious: Yes (Life-Threatening, Hospitalization, Other)
  Sender: FDA-Public Use
  Company Number: IL-BAUSCH-BL-2016-024549

PATIENT
  Age: 13 Year
  Sex: Male

DRUGS (1)
  1. METOCLOPRAMIDE. [Suspect]
     Active Substance: METOCLOPRAMIDE
     Indication: VOMITING
     Route: 048

REACTIONS (1)
  - Neuroleptic malignant syndrome [Recovered/Resolved]
